FAERS Safety Report 25617294 (Version 2)
Quarter: 2025Q3

REPORT INFORMATION
  Report Type: Spontaneous
  Country: US (occurrence: US)
  Receive Date: 20250729
  Receipt Date: 20250807
  Transmission Date: 20251021
  Serious: Yes (Life-Threatening, Hospitalization, Other)
  Sender: AUROBINDO
  Company Number: US-MLMSERVICE-20250710-PI572889-00121-1

PATIENT
  Age: 40 Year
  Sex: Male

DRUGS (3)
  1. DILTIAZEM [Suspect]
     Active Substance: DILTIAZEM
     Indication: Product used for unknown indication
     Route: 048
  2. METOPROLOL [Suspect]
     Active Substance: METOPROLOL
     Indication: Product used for unknown indication
     Route: 048
  3. FLUOXETINE [Suspect]
     Active Substance: FLUOXETINE HYDROCHLORIDE
     Indication: Product used for unknown indication
     Route: 048

REACTIONS (9)
  - Cardiogenic shock [Recovering/Resolving]
  - Metabolic acidosis [Recovering/Resolving]
  - Hypertransaminasaemia [Recovering/Resolving]
  - Overdose [Recovering/Resolving]
  - Cerebral haemorrhage [Unknown]
  - Hypoperfusion [Unknown]
  - Bradycardia [Unknown]
  - Haemorrhagic transformation stroke [Unknown]
  - Toxicity to various agents [Unknown]
